FAERS Safety Report 12406691 (Version 1)
Quarter: 2016Q2

REPORT INFORMATION
  Report Type: Spontaneous
  Country: US (occurrence: US)
  Receive Date: 20160526
  Receipt Date: 20160526
  Transmission Date: 20160815
  Serious: Yes (Hospitalization, Other)
  Sender: FDA-Public Use
  Company Number: US-PFIZER INC-2016265503

PATIENT
  Age: 60 Year
  Sex: Female
  Weight: 75 kg

DRUGS (14)
  1. FENTANYL. [Concomitant]
     Active Substance: FENTANYL
     Dosage: 50 UG, UNK
  2. VITAMIN B2 [Concomitant]
     Active Substance: RIBOFLAVIN
     Dosage: UNK
  3. PREDNISONE. [Concomitant]
     Active Substance: PREDNISONE
     Dosage: 5 MG, 1X/DAY
  4. OXYCODONE HYDROCHLORIDE. [Concomitant]
     Active Substance: OXYCODONE HYDROCHLORIDE
     Indication: PAIN
     Dosage: 10 MG, 4X/DAY (10 MG, 1 TABLET, EVERY 6 HOURS)
  5. BACTRIM SULFONATE [Concomitant]
     Dosage: UNK (SULFAMETHOXAZOLE:400 MG, TRIMETHOPRIM:80 MG)
  6. FUROSEMIDE. [Concomitant]
     Active Substance: FUROSEMIDE
     Indication: RESPIRATORY DISORDER
     Dosage: 10 MG, 1X/DAY (5 MG, 2 TABLETS ONCE A DAY)
  7. IRON [Concomitant]
     Active Substance: IRON
     Indication: ANAEMIA
     Dosage: UNK
  8. MYCOPHENOLATE MOFETIL. [Concomitant]
     Active Substance: MYCOPHENOLATE MOFETIL
     Dosage: 250 MG, 4X/DAY (2 IN MORNING AND 2 IN EVENING)
  9. ATORVASTATIN [Concomitant]
     Active Substance: ATORVASTATIN
     Dosage: 20 MG, 1X/DAY
  10. VENTOLIN [Concomitant]
     Active Substance: ALBUTEROL SULFATE
     Indication: COUGH
     Dosage: UNK, 4X/DAY
  11. SIROLIMUS. [Suspect]
     Active Substance: SIROLIMUS
     Indication: RENAL TRANSPLANT
     Dosage: 3 MG, 1X/DAY
     Dates: start: 20160301
  12. SODIUM BICARB [Concomitant]
     Dosage: 650 MG, 3X/DAY
  13. SIROLIMUS. [Suspect]
     Active Substance: SIROLIMUS
     Dosage: 5 MG, 1X/DAY (5 TABLETS OF 1 MG IN THE MORNING)
     Dates: start: 201603
  14. PAROXETINE HCL [Concomitant]
     Active Substance: PAROXETINE HYDROCHLORIDE
     Dosage: 60 MG, 1X/DAY

REACTIONS (8)
  - Lung infection [Unknown]
  - Arthralgia [Not Recovered/Not Resolved]
  - BK virus infection [Unknown]
  - Pain in extremity [Not Recovered/Not Resolved]
  - Erythema [Not Recovered/Not Resolved]
  - Feeling hot [Not Recovered/Not Resolved]
  - Peripheral swelling [Not Recovered/Not Resolved]
  - Limb discomfort [Not Recovered/Not Resolved]

NARRATIVE: CASE EVENT DATE: 201603
